FAERS Safety Report 14122671 (Version 1)
Quarter: 2017Q4

REPORT INFORMATION
  Report Type: Spontaneous
  Country: US (occurrence: None)
  Receive Date: 20171024
  Receipt Date: 20171024
  Transmission Date: 20180321
  Serious: Yes (Hospitalization)
  Sender: FDA-Public Use
  Company Number: None

PATIENT
  Age: 1 Year
  Sex: Female

DRUGS (5)
  1. VIGABTRIN 500MG [Suspect]
     Active Substance: VIGABATRIN
     Indication: MACROCEPHALY
     Route: 048
     Dates: start: 20170915
  2. PHENOBARB [Concomitant]
     Active Substance: PHENOBARBITAL SODIUM
  3. OXCARBAZEPIN [Concomitant]
     Active Substance: OXCARBAZEPINE
  4. DIAZEPAM. [Concomitant]
     Active Substance: DIAZEPAM
  5. POLY VI SOL [Concomitant]

REACTIONS (1)
  - Brain operation [None]

NARRATIVE: CASE EVENT DATE: 20171003
